FAERS Safety Report 7381918-7 (Version None)
Quarter: 2011Q1

REPORT INFORMATION
  Report Type: 
  Country: None (occurrence: None)
  Receive Date: 20110329
  Receipt Date: 20110317
  Transmission Date: 20110831
  Serious: Yes (Hospitalization)
  Sender: FDA-Public Use
  Company Number: HU-ELI_LILLY_AND_COMPANY-HU201101003483

PATIENT
  Age: 67 Year
  Sex: Female
  Weight: 60 kg

DRUGS (3)
  1. FORTEO [Suspect]
     Indication: OSTEOPOROSIS
     Dosage: 20 UG/80 UL, DAILY (1/D)
     Route: 058
     Dates: start: 20101213, end: 20110111
  2. FRONTIN [Concomitant]
     Dosage: UNK, UNKNOWN
     Route: 065
  3. ASPIRIN [Concomitant]
     Dosage: UNK, UNKNOWN
     Route: 065

REACTIONS (3)
  - CHEST PAIN [None]
  - PAIN [None]
  - BACK PAIN [None]
